FAERS Safety Report 5328244-5 (Version None)
Quarter: 2007Q2

REPORT INFORMATION
  Report Type: 
  Country: None (occurrence: None)
  Receive Date: 20070518
  Receipt Date: 20070508
  Transmission Date: 20071010
  Serious: Yes (Other)
  Sender: FDA-Public Use
  Company Number: FI-SHR-FI-2005-012316

PATIENT
  Age: 52 Year
  Sex: Female
  Weight: 64 kg

DRUGS (4)
  1. MIRENA [Suspect]
     Indication: CONTRACEPTION
     Dosage: 20 A?G/DAY, CONT
     Route: 015
     Dates: start: 19960101, end: 20050627
  2. MIRENA [Suspect]
     Dosage: 20 A?G/DAY, CONT
     Route: 015
     Dates: start: 20030609, end: 20050627
  3. CLIMARA [Suspect]
     Indication: HORMONE REPLACEMENT THERAPY
     Dosage: 50 A?G, CONT
     Route: 062
     Dates: start: 20040920, end: 20050323
  4. PROGYNOVA [Suspect]
     Dosage: 2 MG, UNK
     Route: 048
     Dates: start: 20050323, end: 20050619

REACTIONS (1)
  - BREAST CANCER METASTATIC [None]
